FAERS Safety Report 15878441 (Version 1)
Quarter: 2019Q1

REPORT INFORMATION
  Report Type: Spontaneous
  Country: US (occurrence: US)
  Receive Date: 20190103
  Receipt Date: 20190103
  Transmission Date: 20190417
  Serious: Yes (Death)
  Sender: FDA-Public Use
  Company Number: None

PATIENT
  Age: 63 Year
  Sex: Female

DRUGS (8)
  1. OLOPATADINE. [Concomitant]
     Active Substance: OLOPATADINE
  2. REBIF [Suspect]
     Active Substance: INTERFERON BETA-1A
     Indication: MULTIPLE SCLEROSIS
     Route: 058
     Dates: start: 20180215, end: 20181107
  3. AMIODARONE [Concomitant]
     Active Substance: AMIODARONE
  4. ATORVASTATIN [Concomitant]
     Active Substance: ATORVASTATIN
  5. OMEPRAZOLE. [Concomitant]
     Active Substance: OMEPRAZOLE
  6. GABAPENTIN. [Concomitant]
     Active Substance: GABAPENTIN
  7. IRBESARTAN. [Concomitant]
     Active Substance: IRBESARTAN
  8. LEVOTHYROXINE. [Concomitant]
     Active Substance: LEVOTHYROXINE

REACTIONS (1)
  - Death [None]

NARRATIVE: CASE EVENT DATE: 20181203
